FAERS Safety Report 17191917 (Version 1)
Quarter: 2019Q4

REPORT INFORMATION
  Report Type: Spontaneous
  Country: NL (occurrence: NL)
  Receive Date: 20191223
  Receipt Date: 20191223
  Transmission Date: 20200122
  Serious: Yes (Hospitalization)
  Sender: FDA-Public Use
  Company Number: NL-GALDERMA-NL19076154

PATIENT
  Age: 32 Year
  Sex: Female
  Weight: 85 kg

DRUGS (1)
  1. SOOLANTRA [Suspect]
     Active Substance: IVERMECTIN
     Indication: SKIN DISORDER
     Dosage: 10 MG/G
     Route: 061
     Dates: start: 20180414

REACTIONS (5)
  - Pain of skin [Unknown]
  - Product use in unapproved indication [Recovered/Resolved]
  - Erythema [Unknown]
  - Skin burning sensation [Unknown]
  - Dry skin [Unknown]

NARRATIVE: CASE EVENT DATE: 20180414
